FAERS Safety Report 23097531 (Version 1)
Quarter: 2023Q4

REPORT INFORMATION
  Report Type: Spontaneous
  Country: HR (occurrence: None)
  Receive Date: 20231023
  Receipt Date: 20231023
  Transmission Date: 20240110
  Serious: Yes (Life-Threatening, Hospitalization, Disabling)
  Sender: FDA-Public Use
  Company Number: 2023A237760

PATIENT
  Age: 63 Year
  Sex: Female
  Weight: 48 kg

DRUGS (1)
  1. LYNPARZA [Suspect]
     Active Substance: OLAPARIB
     Indication: Ovarian cancer stage III
     Dosage: NUMBER OF MEDICINAL PRODUCT: 150 MG DOSAGE: TWICE A DAY TABLETS (600 MG PER DAY)300.0MG UNKNOWN
     Route: 048
     Dates: start: 20200722, end: 20230714

REACTIONS (3)
  - Myelodysplastic syndrome with multilineage dysplasia [Not Recovered/Not Resolved]
  - Acute myeloid leukaemia [Unknown]
  - Myelodysplastic syndrome transformation [Unknown]

NARRATIVE: CASE EVENT DATE: 20230101
